FAERS Safety Report 5884652-5 (Version None)
Quarter: 2008Q3

REPORT INFORMATION
  Report Type: 
  Country: None (occurrence: None)
  Receive Date: 20080916
  Receipt Date: 20080905
  Transmission Date: 20090109
  Serious: Yes (Other)
  Sender: FDA-Public Use
  Company Number: SG-BAXTER-2008BH009236

PATIENT

DRUGS (1)
  1. LACTATED RINGER'S [Suspect]
     Indication: EYE IRRIGATION
     Route: 061
     Dates: start: 19880729, end: 20080729

REACTIONS (1)
  - BLINDNESS [None]
